FAERS Safety Report 14167794 (Version 1)
Quarter: 2017Q4

REPORT INFORMATION
  Report Type: Spontaneous
  Country: US (occurrence: US)
  Receive Date: 20171107
  Receipt Date: 20171107
  Transmission Date: 20180321
  Serious: No
  Sender: FDA-Public Use
  Company Number: US-SA-2017SA083012

PATIENT

DRUGS (4)
  1. SOLOSTAR [Concomitant]
     Active Substance: DEVICE
  2. HUMALOG [Concomitant]
     Active Substance: INSULIN LISPRO
  3. LANTUS [Concomitant]
     Active Substance: INSULIN GLARGINE
     Dosage: DOSE:35 UNIT(S)
  4. TOUJEO [Suspect]
     Active Substance: INSULIN GLARGINE
     Dosage: 40 IN THE MORNING AND 40 IN THE EVENING OF TOUJEO DOSE:40 UNIT(S)
     Route: 065

REACTIONS (1)
  - Product use issue [Unknown]
